FAERS Safety Report 7365211-4 (Version None)
Quarter: 2011Q1

REPORT INFORMATION
  Report Type: 
  Country: None (occurrence: None)
  Receive Date: 20110321
  Receipt Date: 20110310
  Transmission Date: 20110831
  Serious: Yes (Other)
  Sender: FDA-Public Use
  Company Number: CA-BAYER-2011-022001

PATIENT
  Sex: Male

DRUGS (5)
  1. VELCADE [Concomitant]
     Dosage: UNK UNK, BIW
     Dates: end: 20110228
  2. METHADONE [Interacting]
     Dosage: UNK
  3. CYCLOPHOSPHAMIDE [Concomitant]
  4. DEXAMETHASONE [Concomitant]
     Dosage: UNK
     Dates: end: 20110224
  5. AVELOX [Suspect]
     Indication: PNEUMONIA
     Dosage: UNK
     Route: 042
     Dates: start: 20110302

REACTIONS (2)
  - RESPIRATORY DEPRESSION [None]
  - SEDATION [None]
